FAERS Safety Report 20792113 (Version 1)
Quarter: 2022Q2

REPORT INFORMATION
  Report Type: Spontaneous
  Country: US (occurrence: US)
  Receive Date: 20220505
  Receipt Date: 20220505
  Transmission Date: 20220720
  Serious: No
  Sender: FDA-Public Use
  Company Number: US-SA-SAC20220504001098

PATIENT
  Age: 46 Year
  Sex: Female

DRUGS (9)
  1. DUPIXENT [Suspect]
     Active Substance: DUPILUMAB
     Indication: Dermatitis contact
     Dosage: 150 MG/ML, QOW
     Route: 058
     Dates: start: 20210402
  2. DUPIXENT [Suspect]
     Active Substance: DUPILUMAB
     Indication: Multiple sclerosis
  3. DUPIXENT [Suspect]
     Active Substance: DUPILUMAB
     Indication: Dermatitis atopic
  4. HYDROCORTISONE [Concomitant]
     Active Substance: HYDROCORTISONE
  5. AUBAGIO [Concomitant]
     Active Substance: TERIFLUNOMIDE
  6. ZOLOFT [Concomitant]
     Active Substance: SERTRALINE HYDROCHLORIDE
  7. VITAMIN B12 [Concomitant]
     Active Substance: CYANOCOBALAMIN
  8. VITAMIN D3 [Concomitant]
     Active Substance: CHOLECALCIFEROL
  9. LUPRON DEPOT [Concomitant]
     Active Substance: LEUPROLIDE ACETATE

REACTIONS (3)
  - Influenza [Not Recovered/Not Resolved]
  - Laryngitis [Not Recovered/Not Resolved]
  - Product use in unapproved indication [Unknown]

NARRATIVE: CASE EVENT DATE: 20210402
